FAERS Safety Report 5229044-7 (Version None)
Quarter: 2007Q1

REPORT INFORMATION
  Report Type: 
  Country: None (occurrence: None)
  Receive Date: 20070205
  Receipt Date: 20070202
  Transmission Date: 20070707
  Serious: Yes (Hospitalization)
  Sender: FDA-Public Use
  Company Number: 200710420EU

PATIENT
  Age: 39 Year
  Sex: Male

DRUGS (6)
  1. NICODERM [Suspect]
     Dosage: 21MG PER DAY
     Route: 062
     Dates: start: 20061212, end: 20061227
  2. KWELLADA [Suspect]
     Route: 061
     Dates: start: 20061227, end: 20061227
  3. IMOVANE [Concomitant]
     Indication: SLEEP DISORDER
     Route: 048
  4. MINOCYCLINE HCL [Concomitant]
     Dates: start: 19820101
  5. LUVOX [Concomitant]
     Indication: DEPRESSION
     Dates: start: 20020101
  6. LOSEC [Concomitant]
     Dates: start: 19820101

REACTIONS (5)
  - ABNORMAL DREAMS [None]
  - ACARODERMATITIS [None]
  - BURNING SENSATION [None]
  - HEADACHE [None]
  - INSOMNIA [None]
